FAERS Safety Report 6369787-5 (Version None)
Quarter: 2009Q3

REPORT INFORMATION
  Report Type: 
  Country: None (occurrence: None)
  Receive Date: 20090917
  Receipt Date: 20090908
  Transmission Date: 20100115
  Serious: Yes (Other)
  Sender: FDA-Public Use
  Company Number: 310003J09USA

PATIENT
  Age: 31 Year
  Sex: Female

DRUGS (1)
  1. GONAL-F [Suspect]
     Indication: ASSISTED FERTILISATION

REACTIONS (2)
  - DRUG EXPOSURE DURING PREGNANCY [None]
  - ECTOPIC PREGNANCY [None]
